FAERS Safety Report 4288814-2 (Version None)
Quarter: 2004Q1

REPORT INFORMATION
  Report Type: 
  Country: None (occurrence: None)
  Receive Date: 20040205
  Receipt Date: 20040127
  Transmission Date: 20041129
  Serious: Yes (Hospitalization, Other)
  Sender: FDA-Public Use
  Company Number: 2003192213JP

PATIENT
  Age: 9 Month
  Sex: Female
  Weight: 6.5 kg

DRUGS (10)
  1. CLINDAMYCIN HCL [Suspect]
     Indication: PNEUMONIA
     Dosage: 75 MG, TID, IV
     Route: 042
     Dates: start: 20031205, end: 20031217
  2. DECONGESTANTS AND ANTIALLERGICS [Concomitant]
  3. ORASPOR (CEFROXADINE) SYRUP [Concomitant]
  4. ENALAPRIL MALEATE [Concomitant]
  5. DIGOSIN [Concomitant]
  6. MUCODYNE SYRUP [Concomitant]
  7. ASVERIN (TIPEPIDINE HIBENZATE) TABLET [Concomitant]
  8. MEPTIN (PROCATEROL HYDROCHLORIDE) SYRUP [Concomitant]
  9. HOKUNALIN (TULOBUTEROL HYDROCHLORIDE) [Concomitant]
  10. SAXIZON (HYDROCORTISONE SODIUM SUCCINATE) [Concomitant]

REACTIONS (1)
  - INTERSTITIAL LUNG DISEASE [None]
